FAERS Safety Report 23551656 (Version 3)
Quarter: 2024Q2

REPORT INFORMATION
  Report Type: Spontaneous
  Country: JP (occurrence: JP)
  Receive Date: 20240222
  Receipt Date: 20240404
  Transmission Date: 20240716
  Serious: No
  Sender: FDA-Public Use
  Company Number: JP-002147023-NVSJ2024JP002349

PATIENT
  Sex: Male

DRUGS (1)
  1. COSENTYX [Suspect]
     Active Substance: SECUKINUMAB
     Indication: Psoriatic arthropathy
     Dosage: 300 MG, QW
     Route: 058
     Dates: start: 20240126

REACTIONS (2)
  - Haemorrhoids [Unknown]
  - Haemorrhoidal haemorrhage [Recovering/Resolving]

NARRATIVE: CASE EVENT DATE: 20240214
